FAERS Safety Report 8836560 (Version 6)
Quarter: 2013Q2

REPORT INFORMATION
  Report Type: Spontaneous
  Country: NL (occurrence: None)
  Receive Date: 20121009
  Receipt Date: 20130621
  Transmission Date: 20140414
  Serious: Yes (Hospitalization)
  Sender: FDA-Public Use
  Company Number: ACO_32250_2012

PATIENT
  Age: 53 Year
  Sex: Female

DRUGS (7)
  1. FAMPRIDINE [Suspect]
     Indication: MULTIPLE SCLEROSIS
     Route: 048
     Dates: start: 20120625, end: 20120927
  2. RIVOTRIL (CLONAZEPAM) [Concomitant]
  3. TEMAZEPAM (TEMAZEPAM) [Concomitant]
  4. GABAPENTIN (GABAPENTIN) [Concomitant]
  5. NITROFURANTOIN [Concomitant]
  6. AMLODIPINE (AMLODIPINE) [Concomitant]
  7. SERETIDE (FLUTICASONE PROPIONATE, SALMETEROL XINAFOATE) [Concomitant]

REACTIONS (7)
  - Asthenia [None]
  - Loss of consciousness [None]
  - Dyskinesia [None]
  - Multiple sclerosis [None]
  - Myoclonus [None]
  - Muscle spasms [None]
  - Epilepsy [None]
